FAERS Safety Report 7768383-2 (Version None)
Quarter: 2011Q3

REPORT INFORMATION
  Report Type: 
  Country: None (occurrence: None)
  Receive Date: 20110922
  Receipt Date: 20110302
  Transmission Date: 20111222
  Serious: No
  Sender: FDA-Public Use
  Company Number: US-ASTRAZENECA-2011SE11808

PATIENT
  Sex: Female

DRUGS (7)
  1. LUMIGAN [Concomitant]
     Indication: EYE DISORDER
  2. TRIAMTERENE AND HYDROCHLOROTHIAZIDE [Concomitant]
  3. LEVOTHROID [Concomitant]
  4. LAMOTRIGINE [Concomitant]
  5. ZOLPIDEM TARTRATE [Concomitant]
  6. SEROQUEL XR [Suspect]
     Indication: DEPRESSION
     Route: 048
  7. PRISTQ [Concomitant]

REACTIONS (2)
  - STRESS [None]
  - ANXIETY [None]
